FAERS Safety Report 25208274 (Version 1)
Quarter: 2025Q2

REPORT INFORMATION
  Report Type: Spontaneous
  Country: FR (occurrence: FR)
  Receive Date: 20250417
  Receipt Date: 20250417
  Transmission Date: 20250716
  Serious: Yes (Life-Threatening, Other)
  Sender: OTSUKA
  Company Number: None

PATIENT
  Age: 28 Year
  Sex: Male
  Weight: 74.5 kg

DRUGS (8)
  1. ABILIFY [Suspect]
     Active Substance: ARIPIPRAZOLE
     Indication: Poisoning deliberate
     Route: 065
     Dates: start: 20241018, end: 20241018
  2. TROPATEPINE HYDROCHLORIDE [Suspect]
     Active Substance: TROPATEPINE HYDROCHLORIDE
     Indication: Poisoning deliberate
     Route: 065
     Dates: start: 20241018, end: 20241018
  3. CAFFEINE\PHENOBARBITAL [Suspect]
     Active Substance: CAFFEINE\PHENOBARBITAL
     Indication: Poisoning deliberate
     Route: 065
     Dates: start: 20241018, end: 20241018
  4. SERTRALINE HYDROCHLORIDE [Suspect]
     Active Substance: SERTRALINE HYDROCHLORIDE
     Indication: Poisoning deliberate
     Route: 065
     Dates: start: 20241018, end: 20241018
  5. OXAZEPAM [Suspect]
     Active Substance: OXAZEPAM
     Indication: Poisoning deliberate
     Route: 065
     Dates: start: 20241018, end: 20241018
  6. IMOVANE [Suspect]
     Active Substance: ZOPICLONE
     Indication: Poisoning deliberate
     Route: 065
     Dates: start: 20241018, end: 20241018
  7. PRAZEPAM [Suspect]
     Active Substance: PRAZEPAM
     Indication: Poisoning deliberate
     Route: 065
     Dates: start: 20241018, end: 20241018
  8. LOXAPINE SUCCINATE [Suspect]
     Active Substance: LOXAPINE SUCCINATE
     Indication: Poisoning deliberate
     Route: 065
     Dates: start: 20241018, end: 20241018

REACTIONS (1)
  - Coma [Recovered/Resolved]

NARRATIVE: CASE EVENT DATE: 20241018
